FAERS Safety Report 5265985-2 (Version None)
Quarter: 2007Q1

REPORT INFORMATION
  Report Type: 
  Country: None (occurrence: None)
  Receive Date: 20070312
  Receipt Date: 20070312
  Transmission Date: 20070707
  Serious: Yes (Other)
  Sender: FDA-Public Use
  Company Number: None

PATIENT
  Sex: Male

DRUGS (1)
  1. AFRIN [Suspect]
     Indication: DRUG USE FOR UNKNOWN INDICATION
     Dosage: NASAL
     Route: 045

REACTIONS (5)
  - ABNORMAL BEHAVIOUR [None]
  - CONFUSIONAL STATE [None]
  - DISORIENTATION [None]
  - INTENTIONAL DRUG MISUSE [None]
  - RESPIRATORY RATE INCREASED [None]
